FAERS Safety Report 16904026 (Version 1)
Quarter: 2019Q4

REPORT INFORMATION
  Report Type: Spontaneous
  Country: NL (occurrence: ES)
  Receive Date: 20191010
  Receipt Date: 20191010
  Transmission Date: 20200122
  Serious: Yes (Hospitalization)
  Sender: FDA-Public Use
  Company Number: ES-FRESENIUS KABI-FK201910903

PATIENT
  Age: 19 Year
  Sex: Female

DRUGS (7)
  1. PROPOFOL (MANUFACTURER UNKNOWN) [Suspect]
     Active Substance: PROPOFOL
     Indication: SEDATIVE THERAPY
     Route: 041
     Dates: start: 20140327, end: 20140403
  2. ACETYLSALICYLATE LYSINE [Concomitant]
     Active Substance: ASPIRIN DL-LYSINE
     Indication: THROMBOSIS PROPHYLAXIS
     Route: 042
     Dates: start: 20140328
  3. MIRTAZAPINE. [Concomitant]
     Active Substance: MIRTAZAPINE
     Indication: DEPRESSION
     Route: 048
     Dates: start: 20140403
  4. CLORAZEPATE DIPOTASSIUM. [Concomitant]
     Active Substance: CLORAZEPATE DIPOTASSIUM
     Indication: ANXIETY
     Route: 048
     Dates: start: 20140403
  5. CLAVULANIC ACID/AMOXICILLIN TRIHYDRATE [Suspect]
     Active Substance: AMOXICILLIN\CLAVULANIC ACID
     Indication: POST PROCEDURAL INFECTION
     Route: 042
     Dates: start: 20140327, end: 20140408
  6. REMIFENTANIL [Suspect]
     Active Substance: REMIFENTANIL
     Indication: SEDATIVE THERAPY
     Route: 041
     Dates: start: 20140331, end: 20140404
  7. ESOMEPRAZOLE. [Concomitant]
     Active Substance: ESOMEPRAZOLE MAGNESIUM
     Indication: PROPHYLAXIS AGAINST GASTROINTESTINAL ULCER
     Route: 048
     Dates: start: 20140405

REACTIONS (1)
  - Hepatitis acute [Recovered/Resolved]

NARRATIVE: CASE EVENT DATE: 20140408
